FAERS Safety Report 6013860-8 (Version None)
Quarter: 2008Q4

REPORT INFORMATION
  Report Type: 
  Country: None (occurrence: None)
  Receive Date: 20081219
  Receipt Date: 20081216
  Transmission Date: 20090506
  Serious: Yes (Other)
  Sender: FDA-Public Use
  Company Number: US-JNJFOC-20081204676

PATIENT
  Age: 13 Year
  Sex: Male

DRUGS (3)
  1. INVEGA [Suspect]
     Indication: BIPOLAR DISORDER
  2. SYMBYAX [Suspect]
     Indication: BIPOLAR DISORDER
  3. VYVANSE [Concomitant]
     Indication: ATTENTION DEFICIT/HYPERACTIVITY DISORDER

REACTIONS (2)
  - MOOD SWINGS [None]
  - TARDIVE DYSKINESIA [None]
